FAERS Safety Report 6811531-9 (Version None)
Quarter: 2010Q3

REPORT INFORMATION
  Report Type: 
  Country: None (occurrence: None)
  Receive Date: 20100701
  Receipt Date: 20100311
  Transmission Date: 20110219
  Serious: Yes (Other)
  Sender: FDA-Public Use
  Company Number: US-ASTRAZENECA-2007UW26363

PATIENT
  Age: 487 Month
  Sex: Female
  Weight: 67.1 kg

DRUGS (20)
  1. SEROQUEL [Suspect]
     Indication: BIPOLAR I DISORDER
     Dosage: 10 MG MORN AND 10MG NIGHT
     Route: 048
     Dates: start: 20001001, end: 20051201
  2. SEROQUEL [Suspect]
     Indication: SLEEP DISORDER
     Dosage: 10 MG MORN AND 10MG NIGHT
     Route: 048
     Dates: start: 20001001, end: 20051201
  3. SEROQUEL [Suspect]
     Indication: ANXIETY
     Dosage: 10 MG MORN AND 10MG NIGHT
     Route: 048
     Dates: start: 20001001, end: 20051201
  4. SEROQUEL [Suspect]
     Route: 048
     Dates: start: 20040811
  5. SEROQUEL [Suspect]
     Route: 048
     Dates: start: 20040811
  6. SEROQUEL [Suspect]
     Route: 048
     Dates: start: 20040811
  7. ZYPREXA/SYMBYAX (OLANZAPINE) [Concomitant]
     Dates: start: 20010711
  8. ZYPREXA/SYMBYAX (OLANZAPINE) [Concomitant]
     Dosage: 10MG MORNING AND NIGHT
     Dates: start: 20050101, end: 20050101
  9. EFFEXOR [Concomitant]
     Dates: start: 20010711
  10. ALPRAZOLAM [Concomitant]
     Dates: start: 20010711
  11. LEVAQUIN [Concomitant]
     Dates: start: 20020124
  12. METHYLPREDNISOLONE [Concomitant]
     Dates: start: 20020427
  13. PLAVIX [Concomitant]
     Dates: start: 20040427
  14. OXYCODONE HCL AND ACETAMINOPHEN [Concomitant]
     Dosage: 5/325 MG
     Dates: start: 20040516
  15. NORVASC [Concomitant]
     Dates: start: 20050528
  16. PROTONIX [Concomitant]
     Dates: start: 20040528
  17. HYDROCODONE BITARTRATE AND ACETAMINOPHEN [Concomitant]
     Dosage: 7.5/500 MG
     Dates: start: 20040610
  18. CELEBREX [Concomitant]
     Dates: start: 20041019
  19. MINITRAN [Concomitant]
     Dates: start: 20040625
  20. PERCOCET [Concomitant]
     Dosage: AS DIRECTED
     Dates: start: 20090101

REACTIONS (3)
  - DIABETES MELLITUS [None]
  - DIABETIC NEUROPATHY [None]
  - OBESITY [None]
